FAERS Safety Report 6261023-3 (Version None)
Quarter: 2009Q3

REPORT INFORMATION
  Report Type: 
  Country: None (occurrence: None)
  Receive Date: 20090709
  Receipt Date: 20090702
  Transmission Date: 20100115
  Serious: Yes (Hospitalization, Other)
  Sender: FDA-Public Use
  Company Number: US-BIOGENIDEC-2008BI018071

PATIENT
  Age: 44 Year
  Sex: Male

DRUGS (3)
  1. TYSABRI [Suspect]
     Indication: MULTIPLE SCLEROSIS
     Route: 042
     Dates: start: 20050101, end: 20050101
  2. TYSABRI [Suspect]
     Route: 042
     Dates: start: 20060919, end: 20080602
  3. KEPPRA [Concomitant]
     Indication: CONVULSION

REACTIONS (9)
  - CENTRAL NERVOUS SYSTEM LESION [None]
  - CONVULSION [None]
  - GAIT DISTURBANCE [None]
  - HALLUCINATION [None]
  - MULTIPLE SCLEROSIS RELAPSE [None]
  - PNEUMONIA [None]
  - PULMONARY EMBOLISM [None]
  - THROMBOSIS [None]
  - VASCULITIS CEREBRAL [None]
